FAERS Safety Report 13855329 (Version 1)
Quarter: 2017Q3

REPORT INFORMATION
  Report Type: Spontaneous
  Country: US (occurrence: US)
  Receive Date: 20170810
  Receipt Date: 20170810
  Transmission Date: 20171127
  Serious: No
  Sender: FDA-Public Use
  Company Number: US-VIFOR (INTERNATIONAL) INC.-VIT-2017-04987

PATIENT
  Age: 87 Year
  Sex: Female
  Weight: 62.65 kg

DRUGS (24)
  1. VELTASSA [Suspect]
     Active Substance: PATIROMER
     Indication: HYPERKALAEMIA
     Route: 048
     Dates: start: 20160810
  2. SUPER B COMPLEX/C [Concomitant]
  3. PRAVACHOL [Concomitant]
     Active Substance: PRAVASTATIN SODIUM
  4. PLAVIX [Concomitant]
     Active Substance: CLOPIDOGREL BISULFATE
  5. FIBERCON [Concomitant]
     Active Substance: CALCIUM POLYCARBOPHIL
  6. ZETIA [Concomitant]
     Active Substance: EZETIMIBE
  7. TEMAZEPAM. [Concomitant]
     Active Substance: TEMAZEPAM
  8. RESTORIL [Concomitant]
     Active Substance: TEMAZEPAM
  9. GLYCERYL TRINITRATE [Concomitant]
     Active Substance: NITROGLYCERIN
  10. VITAMINS NOS [Concomitant]
     Active Substance: VITAMINS
  11. FUROSEMIDE. [Concomitant]
     Active Substance: FUROSEMIDE
  12. CALCIUM 600+D3 [Concomitant]
     Active Substance: CALCIUM CARBONATE\VITAMIN D
  13. PRILOSEC [Concomitant]
     Active Substance: OMEPRAZOLE MAGNESIUM
  14. COLCHICINE. [Concomitant]
     Active Substance: COLCHICINE
  15. DOCUSATE SODIUM. [Concomitant]
     Active Substance: DOCUSATE SODIUM
  16. PRAVASTATIN SODIUM. [Concomitant]
     Active Substance: PRAVASTATIN SODIUM
  17. PINDOLOL. [Concomitant]
     Active Substance: PINDOLOL
  18. LASIX [Concomitant]
     Active Substance: FUROSEMIDE
  19. GABAPENTIN. [Concomitant]
     Active Substance: GABAPENTIN
  20. CENTRUM SILVER [Concomitant]
     Active Substance: MINERALS\VITAMINS
  21. TOCOPHEROL [Concomitant]
     Active Substance: TOCOPHEROL
  22. TUMS [Concomitant]
     Active Substance: CALCIUM CARBONATE
  23. COLACE [Concomitant]
     Active Substance: DOCUSATE SODIUM
  24. CLONIDINE HYDROCHLORIDE. [Concomitant]
     Active Substance: CLONIDINE HYDROCHLORIDE

REACTIONS (2)
  - Hypertension [Not Recovered/Not Resolved]
  - Blood pressure abnormal [Unknown]

NARRATIVE: CASE EVENT DATE: 20170504
